FAERS Safety Report 20015689 (Version 1)
Quarter: 2021Q4

REPORT INFORMATION
  Report Type: Spontaneous
  Country: US (occurrence: None)
  Receive Date: 20211101
  Receipt Date: 20211101
  Transmission Date: 20220303
  Serious: No
  Sender: FDA-Public Use
  Company Number: None

PATIENT
  Age: 33 Year
  Sex: Female
  Weight: 85.5 kg

DRUGS (2)
  1. CLONAZEPAM [Suspect]
     Active Substance: CLONAZEPAM
     Indication: Anxiety
     Dosage: OTHER QUANTITY : 90 CAPSULE(S);?FREQUENCY : AS NEEDED;?
     Route: 048
     Dates: start: 20211027
  2. CLONAZEPAM [Suspect]
     Active Substance: CLONAZEPAM
     Indication: Post-traumatic stress disorder

REACTIONS (8)
  - Insomnia [None]
  - Palpitations [None]
  - Chest discomfort [None]
  - Anxiety [None]
  - Headache [None]
  - Nausea [None]
  - Mood swings [None]
  - Decreased appetite [None]

NARRATIVE: CASE EVENT DATE: 20211027
